FAERS Safety Report 4488318-8 (Version None)
Quarter: 2004Q4

REPORT INFORMATION
  Report Type: 
  Country: None (occurrence: None)
  Receive Date: 20041028
  Receipt Date: 20040824
  Transmission Date: 20050328
  Serious: Yes (Other)
  Sender: FDA-Public Use
  Company Number: PHNU2004DE02993

PATIENT
  Sex: Male

DRUGS (6)
  1. ZOMETA [Suspect]
     Indication: PROSTATE CANCER METASTATIC
     Dosage: 4 MG, QMO
     Route: 042
     Dates: start: 20031001
  2. CALCIMAGON [Concomitant]
     Indication: PROSTATE CANCER
     Dosage: 500 MG, QD
     Route: 048
     Dates: start: 20040701
  3. BUSERELIN ^HOECHST^ [Concomitant]
     Indication: PROSTATE CANCER
     Dosage: 1 DF, Q3MO
     Dates: start: 20040201
  4. CASODEX [Concomitant]
     Indication: PROSTATE CANCER
     Dosage: 150 MG, QD
     Route: 048
     Dates: start: 20030501, end: 20040101
  5. FARLUTAL [Concomitant]
     Indication: PROSTATE CANCER
     Dosage: 1 DF, ONCE/SINGLE
     Route: 065
     Dates: start: 20040501, end: 20040501
  6. CYPROTERONE ACETATE [Concomitant]
     Indication: PROSTATE CANCER
     Dosage: 50 TO 100MG/DAY
     Route: 048
     Dates: start: 20030701, end: 20031201

REACTIONS (4)
  - ACTINOMYCOSIS [None]
  - IMPAIRED HEALING [None]
  - OSTEOMYELITIS [None]
  - TOOTH EXTRACTION [None]
